FAERS Safety Report 5928510-6 (Version None)
Quarter: 2008Q4

REPORT INFORMATION
  Report Type: 
  Country: None (occurrence: None)
  Receive Date: 20081021
  Receipt Date: 20081007
  Transmission Date: 20090506
  Serious: Yes (Hospitalization, Disabling)
  Sender: FDA-Public Use
  Company Number: CL002022008

PATIENT
  Age: 76 Year
  Sex: Male

DRUGS (3)
  1. CIPROFLOXACIN [Suspect]
     Dosage: 1000 MG
  2. PREDNISOLONE [Suspect]
  3. BENZYLPENICILLIN [Concomitant]

REACTIONS (3)
  - ARTHRALGIA [None]
  - GAIT DISTURBANCE [None]
  - TENDON RUPTURE [None]
